FAERS Safety Report 4642147-0 (Version None)
Quarter: 2005Q2

REPORT INFORMATION
  Report Type: 
  Country: None (occurrence: None)
  Receive Date: 20050421
  Receipt Date: 20050421
  Transmission Date: 20051028
  Serious: Yes (Life-Threatening, Hospitalization)
  Sender: FDA-Public Use
  Company Number: None

PATIENT
  Sex: Male
  Weight: 77.1 kg

DRUGS (12)
  1. COUMADIN [Suspect]
     Indication: ATRIAL FIBRILLATION
     Dosage: 5 MG PO DAILY
     Route: 048
  2. AMIODARONE [Concomitant]
  3. LISINOPRIL [Concomitant]
  4. COREG [Concomitant]
  5. PERCOCET [Concomitant]
  6. LIPITOR [Concomitant]
  7. DARVOCET [Concomitant]
  8. ATIVAN [Concomitant]
  9. M.V.I. [Concomitant]
  10. SYNTHROID [Concomitant]
  11. LASIX [Concomitant]
  12. POTASSIUM CHLORIDE [Concomitant]

REACTIONS (1)
  - INTERNATIONAL NORMALISED RATIO INCREASED [None]
